APPROVED DRUG PRODUCT: EMPAGLIFLOZIN AND METFORMIN HYDROCHLORIDE
Active Ingredient: EMPAGLIFLOZIN; METFORMIN HYDROCHLORIDE
Strength: 5MG;500MG
Dosage Form/Route: TABLET;ORAL
Application: A212198 | Product #001
Applicant: ZYDUS PHARMACEUTICALS USA INC
Approved: Jul 7, 2022 | RLD: No | RS: No | Type: DISCN